FAERS Safety Report 14625145 (Version 1)
Quarter: 2018Q1

REPORT INFORMATION
  Report Type: Report from Study
  Country: None (occurrence: US)
  Receive Date: 20180312
  Receipt Date: 20180312
  Transmission Date: 20180509
  Serious: Yes (Death)
  Sender: FDA-Public Use
  Company Number: US-BAUSCH-BL-2018-006378

PATIENT
  Age: 9 Year
  Sex: Male

DRUGS (1)
  1. XENAZINE [Suspect]
     Active Substance: TETRABENAZINE
     Indication: LENNOX-GASTAUT SYNDROME
     Dosage: 1 TAB IN AM, 1 TAB IN AFTERNOON, 2 TABS IN PM
     Route: 048
     Dates: start: 201404, end: 201802

REACTIONS (2)
  - Off label use [Unknown]
  - Death [Fatal]

NARRATIVE: CASE EVENT DATE: 20180223
